FAERS Safety Report 7672286-1 (Version None)
Quarter: 2011Q3

REPORT INFORMATION
  Report Type: 
  Country: None (occurrence: None)
  Receive Date: 20110809
  Receipt Date: 20110805
  Transmission Date: 20111222
  Serious: Yes (Other)
  Sender: FDA-Public Use
  Company Number: US-PFIZER INC-2010140956

PATIENT
  Sex: Female

DRUGS (1)
  1. AZITHROMYCIN [Suspect]
     Indication: MYCOBACTERIUM AVIUM COMPLEX INFECTION
     Dosage: EVERY MON, WED, FRI
     Route: 042
     Dates: start: 20100801

REACTIONS (9)
  - OROPHARYNGEAL PAIN [None]
  - EAR DISORDER [None]
  - NAUSEA [None]
  - RESPIRATORY TRACT INFECTION [None]
  - MUSCLE SPASMS [None]
  - COUGH [None]
  - MYALGIA [None]
  - TINNITUS [None]
  - HEAD DISCOMFORT [None]
